FAERS Safety Report 9780755 (Version 2)
Quarter: 2014Q1

REPORT INFORMATION
  Report Type: Spontaneous
  Country: US (occurrence: US)
  Receive Date: 20131224
  Receipt Date: 20140110
  Transmission Date: 20141002
  Serious: Yes (Hospitalization, Other)
  Sender: FDA-Public Use
  Company Number: US-SA-2013SA133758

PATIENT
  Age: 71 Year
  Sex: Female
  Weight: 87.99 kg

DRUGS (10)
  1. LANTUS SOLOSTAR [Suspect]
     Indication: TYPE 2 DIABETES MELLITUS
     Dosage: DOSE:15 UNIT(S)
     Route: 058
     Dates: start: 20131119, end: 20131130
  2. LANTUS SOLOSTAR [Suspect]
     Indication: BLOOD GLUCOSE INCREASED
     Dosage: DOSE:15 UNIT(S)
     Route: 058
     Dates: start: 20131119, end: 20131130
  3. SOLOSTAR [Concomitant]
     Indication: TYPE 2 DIABETES MELLITUS
     Dates: start: 20131122, end: 20131218
  4. ALL OTHER THERAPEUTIC PRODUCTS [Concomitant]
     Indication: BLOOD PRESSURE
  5. METFORMIN [Concomitant]
     Dosage: START DATE: 10 YEARS AGO
     Route: 065
  6. WATER PILLS [Concomitant]
     Indication: BLOOD PRESSURE
  7. PRAVASTATIN [Concomitant]
     Route: 065
     Dates: start: 20111102
  8. FUROSEMIDE [Concomitant]
     Indication: CARDIAC DISORDER
     Dosage: STARTED 6 YEARS AGO
     Route: 065
  9. CARVEDILOL [Concomitant]
     Indication: HYPERTENSION
     Dosage: STARTED 7 YEARS AGO
     Route: 065
  10. ASPIRIN [Concomitant]
     Indication: CARDIAC DISORDER
     Dosage: STARTED 6 YEARS AGO
     Route: 065

REACTIONS (8)
  - Nasopharyngitis [Unknown]
  - Pain [Not Recovered/Not Resolved]
  - Gait disturbance [Not Recovered/Not Resolved]
  - Pruritus [Not Recovered/Not Resolved]
  - Tachycardia [Not Recovered/Not Resolved]
  - Visual impairment [Not Recovered/Not Resolved]
  - Asthenia [Not Recovered/Not Resolved]
  - Hypoaesthesia [Not Recovered/Not Resolved]
